FAERS Safety Report 17906161 (Version 1)
Quarter: 2020Q2

REPORT INFORMATION
  Report Type: Spontaneous
  Country: FR (occurrence: FR)
  Receive Date: 20200617
  Receipt Date: 20200617
  Transmission Date: 20200714
  Serious: Yes (Other)
  Sender: FDA-Public Use
  Company Number: FR-AXELLIA-003208

PATIENT
  Age: 78 Year
  Sex: Male
  Weight: 75 kg

DRUGS (20)
  1. CEFOTAXIME [Suspect]
     Active Substance: CEFOTAXIME SODIUM
     Indication: PROSTATITIS
     Route: 042
     Dates: start: 20200525, end: 20200527
  2. SERESTA [Concomitant]
     Active Substance: OXAZEPAM
     Dosage: STRENGTH: 10 MG
  3. RISPERIDONE. [Concomitant]
     Active Substance: RISPERIDONE
  4. FOLIC ACID. [Concomitant]
     Active Substance: FOLIC ACID
  5. DAPTOMYCIN. [Suspect]
     Active Substance: DAPTOMYCIN
     Indication: SEPSIS
     Dates: start: 20200525, end: 20200527
  6. KARDEGIC [Concomitant]
     Active Substance: ASPIRIN DL-LYSINE
     Dosage: STRENGTH: 75 MG POWDER FOR ORAL SOLUTION IN SACHET-DOSE
  7. ZEBINIX [Concomitant]
     Active Substance: ESLICARBAZEPINE ACETATE
  8. MIRTAZAPINE. [Concomitant]
     Active Substance: MIRTAZAPINE
  9. PRAVASTATIN. [Concomitant]
     Active Substance: PRAVASTATIN
  10. CALCIUM VITAMIN D3 BAYER [Concomitant]
  11. REFRESH CELLUVISC [Concomitant]
     Active Substance: CARBOXYMETHYLCELLULOSE SODIUM
  12. SPASFON [PHLOROGLUCINOL;TRIMETHYLPHLOROGLUCINOL] [Concomitant]
     Active Substance: PHLOROGLUCINOL\1,3,5-TRIMETHOXYBENZENE
  13. ABASAGLAR [Concomitant]
     Active Substance: INSULIN GLARGINE
  14. TAMSULOSIN/TAMSULOSIN HYDROCHLORIDE [Concomitant]
     Active Substance: TAMSULOSIN HYDROCHLORIDE
  15. CELIPROLOL [Concomitant]
     Active Substance: CELIPROLOL
  16. APROVEL [Concomitant]
     Active Substance: IRBESARTAN
  17. LEVOTHYROX [Concomitant]
     Active Substance: LEVOTHYROXINE
     Dosage: STRENGTH: 25 MICROGRAMS, SCORED TABLET
  18. FUROSEMIDE. [Concomitant]
     Active Substance: FUROSEMIDE
     Dates: start: 20200514
  19. VALPROIC ACID. [Concomitant]
     Active Substance: VALPROIC ACID
  20. IMOVANE [Concomitant]
     Active Substance: ZOPICLONE
     Dosage: STRENGTH: 3.75 MG

REACTIONS (1)
  - Hepatocellular injury [Recovering/Resolving]

NARRATIVE: CASE EVENT DATE: 20200527
